FAERS Safety Report 12574068 (Version 3)
Quarter: 2016Q3

REPORT INFORMATION
  Report Type: Spontaneous
  Country: US (occurrence: US)
  Receive Date: 20160720
  Receipt Date: 20160919
  Transmission Date: 20161109
  Serious: Yes (Other)
  Sender: FDA-Public Use
  Company Number: US-TEVA-669761USA

PATIENT
  Sex: Female

DRUGS (2)
  1. HYDROMORPHONE [Concomitant]
     Active Substance: HYDROMORPHONE
     Indication: PAIN
  2. ZECUITY [Suspect]
     Active Substance: SUMATRIPTAN SUCCINATE
     Indication: MIGRAINE
     Route: 062

REACTIONS (16)
  - Application site bruise [Recovered/Resolved]
  - Application site scar [Recovered/Resolved]
  - Application site discolouration [Recovered/Resolved]
  - Application site inflammation [Recovered/Resolved]
  - Application site discomfort [Recovered/Resolved]
  - Drug ineffective [Unknown]
  - Application site paraesthesia [Recovered/Resolved]
  - Application site erythema [Recovered/Resolved]
  - Application site exfoliation [Recovered/Resolved]
  - Application site urticaria [Recovered/Resolved]
  - Application site burn [Recovered/Resolved]
  - Application site pain [Recovered/Resolved]
  - Application site scab [Recovered/Resolved]
  - Application site irritation [Recovered/Resolved]
  - Application site erosion [Recovered/Resolved]
  - Application site pruritus [Recovered/Resolved]
